FAERS Safety Report 24146132 (Version 2)
Quarter: 2024Q3

REPORT INFORMATION
  Report Type: Spontaneous
  Country: US (occurrence: US)
  Receive Date: 20240729
  Receipt Date: 20240829
  Transmission Date: 20241016
  Serious: No
  Sender: ROCHE
  Company Number: US-ROCHE-10000034288

PATIENT
  Age: 56 Year
  Sex: Female

DRUGS (27)
  1. XOLAIR [Suspect]
     Active Substance: OMALIZUMAB
     Indication: Asthma
     Dosage: ONE 300 MG PFS PER DOSE
     Route: 058
     Dates: start: 20240711
  2. XOLAIR [Suspect]
     Active Substance: OMALIZUMAB
     Indication: Chronic obstructive pulmonary disease
     Dosage: TWO 150 MG PFS PER DOSE
     Route: 058
  3. XOLAIR [Suspect]
     Active Substance: OMALIZUMAB
     Dosage: TWO 150 MG PFS PER DOSE
     Route: 058
  4. BENADRYL [Concomitant]
     Active Substance: DIPHENHYDRAMINE HYDROCHLORIDE
     Indication: Pruritus
  5. HYDROXYZINE [Concomitant]
     Active Substance: HYDROXYZINE HYDROCHLORIDE
     Indication: Pruritus
  6. PHENERGAN [Concomitant]
     Active Substance: PROMETHAZINE HYDROCHLORIDE
     Indication: Nausea
  7. PHENERGAN [Concomitant]
     Active Substance: PROMETHAZINE HYDROCHLORIDE
     Indication: Motion sickness
  8. METOPROLOL [Concomitant]
     Active Substance: METOPROLOL
  9. XANAX [Concomitant]
     Active Substance: ALPRAZOLAM
  10. PAXIL [Concomitant]
     Active Substance: PAROXETINE HYDROCHLORIDE
  11. ALBUTEROL [Concomitant]
     Active Substance: ALBUTEROL
     Route: 055
  12. ADVAIR HFA [Concomitant]
     Active Substance: FLUTICASONE PROPIONATE\SALMETEROL XINAFOATE
     Route: 055
  13. ALBUTEROL [Concomitant]
     Active Substance: ALBUTEROL
  14. SINGULAIR [Concomitant]
     Active Substance: MONTELUKAST SODIUM
  15. FLONASE [Concomitant]
     Active Substance: FLUTICASONE PROPIONATE
  16. XYZAL [Concomitant]
     Active Substance: LEVOCETIRIZINE DIHYDROCHLORIDE
  17. THEOPHYLLINE [Concomitant]
     Active Substance: THEOPHYLLINE
  18. GABAPENTIN [Concomitant]
     Active Substance: GABAPENTIN
  19. NORCO [Concomitant]
     Active Substance: ACETAMINOPHEN\HYDROCODONE BITARTRATE
  20. POTASSIUM [Concomitant]
     Active Substance: POTASSIUM
  21. XARELTO [Concomitant]
     Active Substance: RIVAROXABAN
  22. TESSALON [Concomitant]
     Active Substance: BENZONATATE
  23. ESTRADIOL [Concomitant]
     Active Substance: ESTRADIOL
     Route: 062
  24. MELOXICAM [Concomitant]
     Active Substance: MELOXICAM
  25. SOMA [Concomitant]
     Active Substance: CARISOPRODOL
  26. VOLTAREN [Concomitant]
     Active Substance: DICLOFENAC SODIUM
  27. MAGNESIUM OXIDE [Concomitant]
     Active Substance: MAGNESIUM OXIDE

REACTIONS (9)
  - Exposure via skin contact [Unknown]
  - Product dose omission issue [Unknown]
  - Anxiety [Unknown]
  - Nausea [Recovered/Resolved]
  - Motion sickness [Recovered/Resolved]
  - Pruritus [Recovered/Resolved]
  - Vomiting [Recovered/Resolved]
  - Syringe issue [Unknown]
  - Device defective [Unknown]
